FAERS Safety Report 18217502 (Version 1)
Quarter: 2020Q3

REPORT INFORMATION
  Report Type: Other
  Country: FR (occurrence: FR)
  Receive Date: 20200901
  Receipt Date: 20200901
  Transmission Date: 20201103
  Serious: Yes (Life-Threatening)
  Sender: FDA-Public Use
  Company Number: FR-EMCURE PHARMACEUTICALS LTD-2020-EPL-001224

PATIENT
  Age: 54 Year
  Sex: Male
  Weight: 62 kg

DRUGS (4)
  1. CYTARABINE. [Interacting]
     Active Substance: CYTARABINE
     Indication: BONE MARROW CONDITIONING REGIMEN
     Dosage: 715 MILLIGRAM, DAILY
     Route: 042
     Dates: start: 20200624, end: 20200627
  2. CARMUSTINE. [Suspect]
     Active Substance: CARMUSTINE
     Indication: BONE MARROW CONDITIONING REGIMEN
     Dosage: 550 MILLIGRAM, TOTAL
     Route: 042
     Dates: start: 20200623, end: 20200623
  3. MELPHALAN. [Interacting]
     Active Substance: MELPHALAN
     Indication: BONE MARROW CONDITIONING REGIMEN
     Dosage: 250.5 MILLIGRAM, TOTAL
     Route: 041
     Dates: start: 20200628, end: 20200628
  4. ETOPOSIDE PHOSPHATE [Interacting]
     Active Substance: ETOPOSIDE PHOSPHATE
     Indication: BONE MARROW CONDITIONING REGIMEN
     Dosage: 715 MILLIGRAM, DAILY
     Route: 042
     Dates: start: 20200624, end: 20200627

REACTIONS (7)
  - Liver injury [Recovering/Resolving]
  - Mucosal inflammation [Recovering/Resolving]
  - Febrile bone marrow aplasia [Recovering/Resolving]
  - Colitis [Recovering/Resolving]
  - Pneumonia [Recovered/Resolved]
  - Acute respiratory distress syndrome [Recovered/Resolved]
  - Drug interaction [Recovering/Resolving]

NARRATIVE: CASE EVENT DATE: 202006
